FAERS Safety Report 13913401 (Version 1)
Quarter: 2017Q3

REPORT INFORMATION
  Report Type: Spontaneous
  Country: US (occurrence: US)
  Receive Date: 20170828
  Receipt Date: 20170828
  Transmission Date: 20171127
  Serious: No
  Sender: FDA-Public Use
  Company Number: US-ROCHE-1136483

PATIENT
  Age: 13 Year
  Sex: Male
  Weight: 33.3 kg

DRUGS (2)
  1. NUTROPIN AQ [Suspect]
     Active Substance: SOMATROPIN
     Route: 065
     Dates: start: 200001, end: 200002
  2. NUTROPIN AQ [Suspect]
     Active Substance: SOMATROPIN
     Indication: DWARFISM
     Route: 058
     Dates: start: 199801

REACTIONS (1)
  - Headache [Unknown]

NARRATIVE: CASE EVENT DATE: 20000418
